FAERS Safety Report 8418447-5 (Version None)
Quarter: 2012Q2

REPORT INFORMATION
  Report Type: 
  Country: None (occurrence: None)
  Receive Date: 20120607
  Receipt Date: 20120604
  Transmission Date: 20120825
  Serious: Yes (Other)
  Sender: FDA-Public Use
  Company Number: US-PFIZER INC-2012118044

PATIENT
  Sex: Male
  Weight: 103 kg

DRUGS (3)
  1. SIMVASTATIN [Suspect]
     Indication: CARDIAC OPERATION
  2. ATORVASTATIN CALCIUM [Suspect]
     Dosage: UNK
  3. SIMVASTATIN [Suspect]
     Indication: AORTIC ANEURYSM
     Dosage: 20 MG, 1X/DAY
     Dates: start: 20070201

REACTIONS (3)
  - GAIT DISTURBANCE [None]
  - MYALGIA [None]
  - NEUROPATHY PERIPHERAL [None]
